FAERS Safety Report 12376032 (Version 1)
Quarter: 2016Q2

REPORT INFORMATION
  Report Type: Spontaneous
  Country: None (occurrence: None)
  Receive Date: 20160516
  Receipt Date: 20160516
  Transmission Date: 20160815
  Serious: Yes (Disabling, Other)
  Sender: FDA-Public Use
  Company Number: None

PATIENT
  Sex: Female

DRUGS (2)
  1. MIRENA [Suspect]
     Active Substance: LEVONORGESTREL
  2. ALEVE [Concomitant]
     Active Substance: NAPROXEN SODIUM

REACTIONS (14)
  - Chest pain [None]
  - Pain [None]
  - Cognitive disorder [None]
  - Weight increased [None]
  - Sleep disorder [None]
  - Palpitations [None]
  - Back pain [None]
  - Visual impairment [None]
  - Night sweats [None]
  - Rash [None]
  - Alopecia [None]
  - Fatigue [None]
  - Gastric dilatation [None]
  - Pain in extremity [None]

NARRATIVE: CASE EVENT DATE: 20061215
